FAERS Safety Report 9914146 (Version 1)
Quarter: 2014Q1

REPORT INFORMATION
  Report Type: Spontaneous
  Country: US (occurrence: US)
  Receive Date: 20140220
  Receipt Date: 20140220
  Transmission Date: 20141002
  Serious: Yes (Hospitalization, Other)
  Sender: FDA-Public Use
  Company Number: US-PFIZER INC-2014045133

PATIENT
  Age: 44 Year
  Sex: Female

DRUGS (38)
  1. NICOTROL INHALER [Suspect]
     Dosage: UNK
     Route: 055
  2. ADVAIR DISKUS [Suspect]
     Indication: ASTHMA
     Dosage: FLUTICASONE PROPIONATE 250/50 MCGMCG/ SALMETEROL XINAFOATE
     Route: 055
  3. ADVAIR DISKUS [Suspect]
     Dosage: FLUTICASONE PROPIONATE 500MCG/ SALMETEROL XINAFOATE 50 MCG, 1 PUFF, TWICE PER DAY
     Route: 055
     Dates: start: 201303
  4. VENTOLIN HFA-CFC [Suspect]
     Indication: ASTHMA
     Dosage: 2 PUFFS, AS REQUIRED
     Route: 055
  5. VANCOMYCIN [Concomitant]
     Dosage: UNK
  6. PEPCID [Concomitant]
     Dosage: UNK
  7. PLAQUENIL [Concomitant]
     Dosage: UNK
  8. SOMA [Concomitant]
     Dosage: UNK
  9. VIAGRA [Concomitant]
     Dosage: UNK
  10. POTASSIUM [Concomitant]
     Dosage: UNK
  11. BENTYL [Concomitant]
     Dosage: UNK
  12. VITAMIN D [Concomitant]
     Dosage: UNK
  13. MINIPRESS [Concomitant]
     Dosage: UNK
  14. LOMOTIL [Concomitant]
     Dosage: UNK
  15. PROMETHAZINE [Concomitant]
     Dosage: UNK
  16. TRAZODONE [Concomitant]
     Dosage: UNK
  17. SYNTHROID [Concomitant]
     Dosage: UNK
  18. LEVBID [Concomitant]
     Dosage: UNK
  19. CLARITIN [Concomitant]
     Dosage: UNK
  20. TRENTAL [Concomitant]
     Dosage: UNK
  21. PROTONIX [Concomitant]
     Dosage: UNK
  22. DIAMOX [Concomitant]
     Dosage: UNK
  23. ATROVENT [Concomitant]
     Dosage: UNK
  24. FLONASE [Concomitant]
     Dosage: UNK
  25. CARAFATE [Concomitant]
     Dosage: UNK
  26. RESTASIS [Concomitant]
     Dosage: UNK
  27. CLOSTRIDIUM BUTYRICUM [Concomitant]
     Dosage: UNK
  28. FLORASTOR [Concomitant]
     Dosage: UNK
  29. NYSTATIN [Concomitant]
     Dosage: UNK
  30. FLAGYL [Concomitant]
     Dosage: UNK
  31. DIFICID [Concomitant]
     Dosage: UNK
  32. DILAUDID [Concomitant]
     Dosage: UNK
  33. TYLENOL [Concomitant]
     Dosage: UNK
  34. ZOFRAN [Concomitant]
     Dosage: UNK
  35. LEVSIN [Concomitant]
     Dosage: UNK
  36. LIQUID POTASSIUM [Concomitant]
     Dosage: UNK
  37. NYSTATIN [Concomitant]
     Dosage: UNK
  38. ALPRAZOLAM [Concomitant]
     Dosage: UNK

REACTIONS (9)
  - Kidney infection [Unknown]
  - Clostridium difficile infection [Unknown]
  - Myocardial infarction [Unknown]
  - Clostridium test positive [Unknown]
  - Pneumonia [Not Recovered/Not Resolved]
  - Bronchitis [Not Recovered/Not Resolved]
  - Throat irritation [Unknown]
  - Weight fluctuation [Unknown]
  - Extra dose administered [Unknown]
